FAERS Safety Report 5760445-4 (Version None)
Quarter: 2008Q2

REPORT INFORMATION
  Report Type: 
  Country: None (occurrence: None)
  Receive Date: 20080605
  Receipt Date: 20080527
  Transmission Date: 20081010
  Serious: Yes (Other)
  Sender: FDA-Public Use
  Company Number: US-PFIZER INC-2008045451

PATIENT
  Sex: Female
  Weight: 36.363 kg

DRUGS (4)
  1. CHANTIX [Suspect]
     Indication: EX-SMOKER
     Dates: start: 20080401, end: 20080401
  2. CREON [Concomitant]
  3. VITAMIN D [Concomitant]
  4. FOSAMAX [Concomitant]

REACTIONS (3)
  - DYSURIA [None]
  - URINARY RETENTION [None]
  - URINE OUTPUT DECREASED [None]
